FAERS Safety Report 5933540-4 (Version None)
Quarter: 2008Q4

REPORT INFORMATION
  Report Type: 
  Country: None (occurrence: None)
  Receive Date: 20081024
  Receipt Date: 20081014
  Transmission Date: 20090506
  Serious: Yes (Hospitalization, Other)
  Sender: FDA-Public Use
  Company Number: JPI-P-002165

PATIENT
  Age: 15 Year
  Sex: Male

DRUGS (21)
  1. XYREM [Suspect]
     Indication: CATAPLEXY
     Dosage: SEE IMAGE
     Route: 048
     Dates: start: 20070802, end: 20070807
  2. XYREM [Suspect]
     Indication: NARCOLEPSY
     Dosage: SEE IMAGE
     Route: 048
     Dates: start: 20070802, end: 20070807
  3. XYREM [Suspect]
     Indication: CATAPLEXY
     Dosage: SEE IMAGE
     Route: 048
     Dates: start: 20070808, end: 20070814
  4. XYREM [Suspect]
     Indication: NARCOLEPSY
     Dosage: SEE IMAGE
     Route: 048
     Dates: start: 20070808, end: 20070814
  5. XYREM [Suspect]
     Indication: CATAPLEXY
     Dosage: SEE IMAGE
     Route: 048
     Dates: start: 20070815, end: 20070818
  6. XYREM [Suspect]
     Indication: NARCOLEPSY
     Dosage: SEE IMAGE
     Route: 048
     Dates: start: 20070815, end: 20070818
  7. XYREM [Suspect]
     Indication: CATAPLEXY
     Dosage: SEE IMAGE
     Route: 048
     Dates: start: 20070819, end: 20070821
  8. XYREM [Suspect]
     Indication: NARCOLEPSY
     Dosage: SEE IMAGE
     Route: 048
     Dates: start: 20070819, end: 20070821
  9. XYREM [Suspect]
     Indication: CATAPLEXY
     Dosage: SEE IMAGE
     Route: 048
     Dates: start: 20070822, end: 20070825
  10. XYREM [Suspect]
     Indication: NARCOLEPSY
     Dosage: SEE IMAGE
     Route: 048
     Dates: start: 20070822, end: 20070825
  11. XYREM [Suspect]
     Indication: CATAPLEXY
     Dosage: SEE IMAGE
     Route: 048
     Dates: start: 20070826, end: 20070917
  12. XYREM [Suspect]
     Indication: NARCOLEPSY
     Dosage: SEE IMAGE
     Route: 048
     Dates: start: 20070826, end: 20070917
  13. XYREM [Suspect]
     Indication: CATAPLEXY
     Dosage: SEE IMAGE
     Route: 048
     Dates: start: 20080101, end: 20081005
  14. XYREM [Suspect]
     Indication: NARCOLEPSY
     Dosage: SEE IMAGE
     Route: 048
     Dates: start: 20080101, end: 20081005
  15. XYREM [Suspect]
     Indication: CATAPLEXY
     Dosage: SEE IMAGE
     Route: 048
     Dates: start: 20081001
  16. XYREM [Suspect]
     Indication: NARCOLEPSY
     Dosage: SEE IMAGE
     Route: 048
     Dates: start: 20081001
  17. MAZINDOL (MAZINDOL) [Suspect]
     Indication: CATAPLEXY
     Dosage: ORAL
     Route: 048
     Dates: start: 20050101, end: 20070801
  18. . [Concomitant]
  19. METHYLPHAENIDATE HYDROCHLORIDE (METHYLPHENIDATE HYDROCHLORIDE) [Concomitant]
  20. VENLAFAXINE HCL [Concomitant]
  21. METHYLPHENIDATE HYDROCHLORIDE SLOW RELEASE (METHYLPHENIDATE HYDROCHLOR [Concomitant]

REACTIONS (6)
  - ABNORMAL BEHAVIOUR [None]
  - ACCIDENTAL OVERDOSE [None]
  - MUSCLE CONTRACTIONS INVOLUNTARY [None]
  - NIGHTMARE [None]
  - SLEEP APNOEA SYNDROME [None]
  - SUPRAVENTRICULAR EXTRASYSTOLES [None]
